FAERS Safety Report 5646922-5 (Version None)
Quarter: 2008Q1

REPORT INFORMATION
  Report Type: 
  Country: None (occurrence: None)
  Receive Date: 20080131
  Receipt Date: 20071203
  Transmission Date: 20080703
  Serious: No
  Sender: FDA-Public Use
  Company Number: 163-21880-07120161

PATIENT
  Age: 84 Year
  Sex: Male

DRUGS (1)
  1. REVLIMID [Suspect]
     Indication: MULTIPLE MYELOMA
     Dosage: 10 MG, DAILY 28/28, ORAL
     Route: 048
     Dates: start: 20070220, end: 20071101

REACTIONS (2)
  - BLOOD COUNT ABNORMAL [None]
  - RASH [None]
